FAERS Safety Report 4396424-1 (Version None)
Quarter: 2004Q3

REPORT INFORMATION
  Report Type: 
  Country: None (occurrence: None)
  Receive Date: 20040709
  Receipt Date: 20040607
  Transmission Date: 20050211
  Serious: No
  Sender: FDA-Public Use
  Company Number: 8154

PATIENT
  Age: 7 Year
  Sex: Female

DRUGS (13)
  1. METHOTREXATE [Suspect]
     Indication: LEUKAEMIA
     Dosage: 440 MG ONCE/12 MG; IV/IT
     Route: 042
     Dates: start: 20040525, end: 20040526
  2. METHOTREXATE [Suspect]
     Indication: LEUKAEMIA
     Dosage: 440 MG ONCE/12 MG; IV/IT
     Route: 042
     Dates: start: 20040526, end: 20040526
  3. DEXAMETHASONE [Concomitant]
  4. CIPROFLOXACIN [Concomitant]
  5. CO-TRIMOXAZOLE [Concomitant]
  6. CYTARABINE [Concomitant]
  7. PREDNISOLONE [Concomitant]
  8. IFOSFAMIDE [Concomitant]
  9. MESNA [Concomitant]
  10. DANUORUBICIN [Concomitant]
  11. VINDESINE [Concomitant]
  12. ASPARAGINASE [Concomitant]
  13. ONDANSETRON [Concomitant]

REACTIONS (8)
  - ABDOMINAL PAIN [None]
  - ALANINE AMINOTRANSFERASE INCREASED [None]
  - ASPARTATE AMINOTRANSFERASE INCREASED [None]
  - DIARRHOEA [None]
  - GAMMA-GLUTAMYLTRANSFERASE INCREASED [None]
  - LOOSE STOOLS [None]
  - PHARMACEUTICAL PRODUCT COMPLAINT [None]
  - SYNCOPE VASOVAGAL [None]
